FAERS Safety Report 6405376-1 (Version None)
Quarter: 2009Q4

REPORT INFORMATION
  Report Type: 
  Country: None (occurrence: None)
  Receive Date: 20091014
  Receipt Date: 20090930
  Transmission Date: 20100525
  Serious: Yes (Other)
  Sender: FDA-Public Use
  Company Number: 001646

PATIENT
  Sex: Male
  Weight: 91.5359 kg

DRUGS (3)
  1. LACOSAMIDE [Suspect]
     Indication: EPILEPSY
     Dosage: (200 MG BID ORAL)
     Route: 048
     Dates: start: 20090204, end: 20090929
  2. ATIVAN [Concomitant]
  3. TRILEPTAL [Concomitant]

REACTIONS (7)
  - ATRIAL FIBRILLATION [None]
  - CARDIAC FLUTTER [None]
  - CHEST PAIN [None]
  - FATIGUE [None]
  - QRS AXIS ABNORMAL [None]
  - SNORING [None]
  - SUPRAVENTRICULAR TACHYCARDIA [None]
